FAERS Safety Report 18279249 (Version 3)
Quarter: 2020Q4

REPORT INFORMATION
  Report Type: Report from Study
  Country: PE (occurrence: PE)
  Receive Date: 20200917
  Receipt Date: 20201201
  Transmission Date: 20210113
  Serious: Yes (Hospitalization)
  Sender: FDA-Public Use
  Company Number: PE-SEATTLE GENETICS-2019SGN03397

PATIENT
  Sex: Female

DRUGS (1)
  1. BRENTUXIMAB VEDOTIN [Suspect]
     Active Substance: BRENTUXIMAB VEDOTIN
     Indication: CUTANEOUS T-CELL LYMPHOMA
     Dosage: 86 MILLIGRAM
     Route: 042
     Dates: start: 20190612, end: 20200224

REACTIONS (8)
  - Cutaneous T-cell lymphoma [Unknown]
  - Urinary tract infection [Unknown]
  - Skin infection [Unknown]
  - Otorrhoea [Unknown]
  - Discomfort [Unknown]
  - Urinary retention [Unknown]
  - Pyrexia [Not Recovered/Not Resolved]
  - Face oedema [Not Recovered/Not Resolved]
